FAERS Safety Report 4987692-3 (Version None)
Quarter: 2006Q2

REPORT INFORMATION
  Report Type: 
  Country: None (occurrence: None)
  Receive Date: 20060428
  Receipt Date: 20060428
  Transmission Date: 20061013
  Serious: Yes (Life-Threatening, Hospitalization)
  Sender: FDA-Public Use
  Company Number: None

PATIENT
  Age: 64 Year
  Sex: Male
  Weight: 74.8435 kg

DRUGS (9)
  1. TRUVADA [Suspect]
     Indication: HIV INFECTION
     Dosage: 500MG  QD PO
     Route: 048
     Dates: start: 20060127, end: 20060407
  2. EPZICOM [Suspect]
     Indication: HIV INFECTION
     Dosage: 900MG  QD PO
     Route: 048
     Dates: start: 20060127, end: 20060407
  3. KALETRA [Concomitant]
  4. CLONAZEPAM [Concomitant]
  5. MULTI-VITAMIN [Concomitant]
  6. NEXIUM [Concomitant]
  7. NASONEX [Concomitant]
  8. CLARINEX [Concomitant]
  9. BENADRYL [Concomitant]

REACTIONS (19)
  - BAND NEUTROPHIL COUNT INCREASED [None]
  - BURNING SENSATION [None]
  - CHILLS [None]
  - DEHYDRATION [None]
  - DRUG HYPERSENSITIVITY [None]
  - ELECTROCARDIOGRAM POOR R-WAVE PROGRESSION [None]
  - FAECAL INCONTINENCE [None]
  - FALL [None]
  - FLUSHING [None]
  - HEADACHE [None]
  - HYPERHIDROSIS [None]
  - HYPOTENSION [None]
  - LOSS OF CONSCIOUSNESS [None]
  - NAUSEA [None]
  - PARAESTHESIA [None]
  - PRURITUS GENERALISED [None]
  - PYREXIA [None]
  - QRS AXIS ABNORMAL [None]
  - VOMITING [None]
